FAERS Safety Report 4390849-6 (Version None)
Quarter: 2004Q3

REPORT INFORMATION
  Report Type: 
  Country: None (occurrence: None)
  Receive Date: 20040702
  Receipt Date: 20040702
  Transmission Date: 20050211
  Serious: Yes (Death, Hospitalization)
  Sender: FDA-Public Use
  Company Number: None

PATIENT
  Age: 73 Year
  Sex: Male

DRUGS (1)
  1. J AND J CORDIS CYPHER ELUTING STENT [Suspect]
     Dates: start: 20040319

REACTIONS (3)
  - CORONARY ARTERY OCCLUSION [None]
  - POST PROCEDURAL COMPLICATION [None]
  - RETROPERITONEAL HAEMORRHAGE [None]
